FAERS Safety Report 7577469-7 (Version None)
Quarter: 2011Q2

REPORT INFORMATION
  Report Type: 
  Country: None (occurrence: None)
  Receive Date: 20110628
  Receipt Date: 20110609
  Transmission Date: 20111010
  Serious: Yes (Hospitalization, Other)
  Sender: FDA-Public Use
  Company Number: US-BAYER-201041967NA

PATIENT
  Age: 35 Year
  Sex: Female
  Weight: 69.841 kg

DRUGS (7)
  1. YAZ [Suspect]
     Indication: ORAL CONTRACEPTION
  2. FLUOXETINE HCL [Concomitant]
     Indication: MOOD SWINGS
  3. FLUOXETINE HCL [Concomitant]
     Indication: DEPRESSION
     Dosage: 10 MG, QD
     Route: 048
     Dates: start: 20080101, end: 20100101
  4. ANCEF [Concomitant]
     Dosage: UNK
     Route: 042
     Dates: start: 20090120
  5. YAZ [Suspect]
     Indication: HORMONE REPLACEMENT THERAPY
  6. YAZ [Suspect]
     Indication: MENSTRUAL CYCLE MANAGEMENT
     Dosage: UNK UNK, UNK
     Route: 048
     Dates: start: 20081101, end: 20090101
  7. VICODIN [Concomitant]

REACTIONS (4)
  - PAIN IN EXTREMITY [None]
  - OEDEMA PERIPHERAL [None]
  - DEEP VEIN THROMBOSIS [None]
  - FEAR OF DISEASE [None]
